FAERS Safety Report 8150740 (Version 2)
Quarter: 2013Q2

REPORT INFORMATION
  Report Type: Spontaneous
  Country: US (occurrence: US)
  Receive Date: 20110922
  Receipt Date: 20130405
  Transmission Date: 20140414
  Serious: Yes (Other)
  Sender: FDA-Public Use
  Company Number: US-ASTRAZENECA-2011SE12674

PATIENT
  Sex: Male

DRUGS (9)
  1. SEROQUEL [Suspect]
     Route: 048
     Dates: start: 20060911
  2. GLIPIZIDE [Concomitant]
     Dates: start: 20060831
  3. METFORMIN HCL [Concomitant]
     Dates: start: 20060913
  4. LISINOPRIL [Concomitant]
     Dates: start: 20060831
  5. LOVASTATIN [Concomitant]
     Dates: start: 20060831
  6. ACTOS [Concomitant]
     Dates: start: 20060921
  7. ENALAPRIL MALEATE [Concomitant]
     Dates: start: 20060921
  8. BUPROPION SR [Concomitant]
     Dates: start: 20060921
  9. CITALOPRAM HBR [Concomitant]
     Dates: start: 20060921

REACTIONS (3)
  - Pancreatitis [Unknown]
  - Diabetic coma [Unknown]
  - Type 2 diabetes mellitus [Unknown]
